FAERS Safety Report 16096721 (Version 1)
Quarter: 2019Q1

REPORT INFORMATION
  Report Type: Spontaneous
  Country: US (occurrence: US)
  Receive Date: 20190320
  Receipt Date: 20190320
  Transmission Date: 20190418
  Serious: Yes (Death)
  Sender: FDA-Public Use
  Company Number: US-TAKEDA-2019TUS014836

PATIENT

DRUGS (5)
  1. ADCETRIS [Suspect]
     Active Substance: BRENTUXIMAB VEDOTIN
     Indication: PRIMARY EFFUSION LYMPHOMA
     Dosage: 1.8 MILLIGRAM/KILOGRAM, Q3WEEKS
     Route: 042
  2. VELCADE [Suspect]
     Active Substance: BORTEZOMIB
     Indication: PRIMARY EFFUSION LYMPHOMA
     Dosage: UNK
     Route: 065
  3. ETOPOSIDE. [Suspect]
     Active Substance: ETOPOSIDE
     Indication: PRIMARY EFFUSION LYMPHOMA
     Dosage: UNK
     Route: 065
  4. IFOSFAMIDE. [Suspect]
     Active Substance: IFOSFAMIDE
     Indication: PRIMARY EFFUSION LYMPHOMA
     Dosage: 3 CYCLES
     Route: 065
  5. CARBOPLATIN. [Suspect]
     Active Substance: CARBOPLATIN
     Indication: PRIMARY EFFUSION LYMPHOMA
     Dosage: UNK
     Route: 065

REACTIONS (3)
  - Gastric cyst [Unknown]
  - Lymphadenopathy [Unknown]
  - Death [Fatal]
